FAERS Safety Report 9387335 (Version 1)
Quarter: 2013Q3

REPORT INFORMATION
  Report Type: Spontaneous
  Country: US (occurrence: None)
  Receive Date: 20130702
  Receipt Date: 20130702
  Transmission Date: 20140515
  Serious: Yes (Other)
  Sender: FDA-Public Use
  Company Number: AUR-APL-2013-05402

PATIENT
  Age: 27 Year
  Sex: Male

DRUGS (2)
  1. FLUOXETINE [Suspect]
     Indication: DEPRESSION
     Dosage: TITRATED TO 40 MG?
  2. LURASIDONE [Suspect]
     Indication: HALLUCINATION, AUDITORY

REACTIONS (6)
  - Drug interaction [None]
  - Oromandibular dystonia [None]
  - Therapeutic response decreased [None]
  - Dysphagia [None]
  - Speech disorder [None]
  - Dyspnoea [None]
